FAERS Safety Report 24627014 (Version 1)
Quarter: 2024Q4

REPORT INFORMATION
  Report Type: Report from Study
  Country: CL (occurrence: CL)
  Receive Date: 20241115
  Receipt Date: 20241115
  Transmission Date: 20250114
  Serious: Yes (Other)
  Sender: SANDOZ
  Company Number: CL-SANDOZ-SDZ2024CL095421

PATIENT
  Age: 10 Year
  Sex: Male
  Weight: 35 kg

DRUGS (1)
  1. OMNITROPE [Suspect]
     Active Substance: SOMATROPIN
     Indication: Product used for unknown indication
     Dosage: 1.0 MG N/A DOSE EVERY N/A N/A
     Route: 058
     Dates: start: 20210701, end: 20240101

REACTIONS (3)
  - Colitis ulcerative [Unknown]
  - Therapy interrupted [Unknown]
  - Product availability issue [Unknown]

NARRATIVE: CASE EVENT DATE: 20231201
